FAERS Safety Report 10865091 (Version 1)
Quarter: 2015Q1

REPORT INFORMATION
  Report Type: Report from Study
  Country: US (occurrence: US)
  Receive Date: 20150224
  Receipt Date: 20150224
  Transmission Date: 20150721
  Serious: No
  Sender: FDA-Public Use
  Company Number: US-MYLANLABS-2014S1007127

PATIENT
  Sex: Female
  Weight: 58.97 kg

DRUGS (6)
  1. AMNESTEEM [Suspect]
     Active Substance: ISOTRETINOIN
     Dosage: 20 MG,HS
     Dates: end: 20140321
  2. AMNESTEEM [Suspect]
     Active Substance: ISOTRETINOIN
     Indication: ACNE CYSTIC
  3. CLARAVIS [Suspect]
     Active Substance: ISOTRETINOIN
     Indication: ACNE CYSTIC
  4. CLARAVIS [Suspect]
     Active Substance: ISOTRETINOIN
     Dosage: 20 MG,AM
     Route: 048
     Dates: start: 20131127
  5. AMNESTEEM [Suspect]
     Active Substance: ISOTRETINOIN
     Dosage: 20 MG,AM
     Dates: end: 20140321
  6. CLARAVIS [Suspect]
     Active Substance: ISOTRETINOIN
     Dosage: 20 MG,HS
     Route: 048
     Dates: start: 20131127

REACTIONS (4)
  - Disturbance in attention [Not Recovered/Not Resolved]
  - Affect lability [Not Recovered/Not Resolved]
  - Crying [Not Recovered/Not Resolved]
  - Depressed mood [Not Recovered/Not Resolved]
